FAERS Safety Report 6099673-X (Version None)
Quarter: 2009Q1

REPORT INFORMATION
  Report Type: 
  Country: None (occurrence: None)
  Receive Date: 20090303
  Receipt Date: 20090220
  Transmission Date: 20090719
  Serious: Yes (Other)
  Sender: FDA-Public Use
  Company Number: JP-BAXTER-2008BH011712

PATIENT
  Age: 12 Year
  Sex: Male

DRUGS (6)
  1. ENDOXAN BAXTER [Suspect]
     Indication: RHABDOMYOSARCOMA
     Route: 065
     Dates: start: 19960601, end: 19980901
  2. LASTET [Suspect]
     Indication: RHABDOMYOSARCOMA
     Route: 065
     Dates: start: 19960601, end: 19980901
  3. VINCRISTINE SULFATE [Suspect]
     Indication: RHABDOMYOSARCOMA
     Route: 065
     Dates: start: 19960601, end: 19980901
  4. DOXORUBICIN HYDROCHLORIDE [Suspect]
     Indication: RHABDOMYOSARCOMA
     Route: 065
     Dates: start: 19960601, end: 19980901
  5. CISPLATIN [Suspect]
     Indication: RHABDOMYOSARCOMA
     Route: 065
     Dates: start: 19960601, end: 19980901
  6. ACTINOMYCIN D [Suspect]
     Indication: RHABDOMYOSARCOMA
     Route: 065
     Dates: start: 19960601, end: 19980901

REACTIONS (2)
  - BONE SARCOMA [None]
  - METASTASES TO LUNG [None]
